FAERS Safety Report 10120952 (Version 1)
Quarter: 2014Q2

REPORT INFORMATION
  Report Type: Report from Study
  Country: BR (occurrence: BR)
  Receive Date: 20140425
  Receipt Date: 20140425
  Transmission Date: 20141212
  Serious: Yes (Other)
  Sender: FDA-Public Use
  Company Number: PHHY2014BR050539

PATIENT
  Sex: Male

DRUGS (3)
  1. EXFORGE HCT [Suspect]
     Indication: HYPERTENSION
     Dosage: 1 TABLET (320/10/25), IN THE MORNING
     Route: 048
  2. GALVUS [Suspect]
     Indication: DIABETES MELLITUS
     Dosage: 1 TABLET (50 MG) AT LUNCH
     Route: 048
  3. PLAGREL [Suspect]
     Indication: CARDIAC DISORDER
     Dosage: 75 MG ONCE A DAY
     Route: 048

REACTIONS (1)
  - Cerebrovascular accident [Unknown]
